FAERS Safety Report 6413135-9 (Version None)
Quarter: 2009Q4

REPORT INFORMATION
  Report Type: 
  Country: None (occurrence: None)
  Receive Date: 20091026
  Receipt Date: 20091015
  Transmission Date: 20100525
  Serious: Yes (Other)
  Sender: FDA-Public Use
  Company Number: CA-JNJFOC-20090701920

PATIENT
  Sex: Male
  Weight: 84 kg

DRUGS (21)
  1. CNTO 1275 [Suspect]
     Route: 058
  2. CNTO 1275 [Suspect]
     Route: 058
  3. CNTO 1275 [Suspect]
     Route: 058
  4. CNTO 1275 [Suspect]
     Route: 058
  5. CNTO 1275 [Suspect]
     Route: 058
  6. CNTO 1275 [Suspect]
     Route: 058
  7. CNTO 1275 [Suspect]
     Route: 058
  8. CNTO 1275 [Suspect]
     Route: 058
  9. CNTO 1275 [Suspect]
     Route: 058
  10. CNTO 1275 [Suspect]
     Route: 058
  11. CNTO 1275 [Suspect]
     Route: 058
  12. CNTO 1275 [Suspect]
     Route: 058
  13. CNTO 1275 [Suspect]
     Route: 058
  14. CNTO 1275 [Suspect]
     Route: 058
  15. CNTO 1275 [Suspect]
     Indication: PSORIASIS
     Route: 058
  16. LOSEC [Concomitant]
     Indication: PROPHYLAXIS
     Route: 048
  17. ASAPHEN [Concomitant]
     Indication: PROPHYLAXIS
     Route: 048
  18. SOTALOL [Concomitant]
     Indication: PROPHYLAXIS
     Route: 048
  19. ACTONEL [Concomitant]
     Indication: PROPHYLAXIS
     Route: 048
  20. VITAMIN D [Concomitant]
     Indication: PROPHYLAXIS
     Route: 048
  21. LIPITOR [Concomitant]
     Indication: HYPERCHOLESTEROLAEMIA
     Route: 048

REACTIONS (13)
  - ADENOCARCINOMA PANCREAS [None]
  - ADRENAL DISORDER [None]
  - AORTIC ARTERIOSCLEROSIS [None]
  - ATELECTASIS [None]
  - ATRIAL FIBRILLATION [None]
  - EMPHYSEMA [None]
  - FLUID RETENTION [None]
  - HEPATIC CYST [None]
  - METASTASES TO LYMPH NODES [None]
  - PLEURAL EFFUSION [None]
  - RENAL CYST [None]
  - SPLENIC INFARCTION [None]
  - SPLENIC VEIN THROMBOSIS [None]
